FAERS Safety Report 7247022-3 (Version None)
Quarter: 2011Q1

REPORT INFORMATION
  Report Type: 
  Country: None (occurrence: None)
  Receive Date: 20110127
  Receipt Date: 20110124
  Transmission Date: 20110831
  Serious: Yes (Death, Life-Threatening, Other)
  Sender: FDA-Public Use
  Company Number: DE-JNJFOC-20090706228

PATIENT
  Age: 8 Decade
  Sex: Female

DRUGS (5)
  1. ASPIRIN [Concomitant]
     Indication: ILL-DEFINED DISORDER
  2. REOPRO [Suspect]
  3. REOPRO [Suspect]
     Indication: ILL-DEFINED DISORDER
  4. CLOPIDOGREL [Concomitant]
     Indication: ILL-DEFINED DISORDER
  5. HEPARIN [Concomitant]
     Indication: ILL-DEFINED DISORDER

REACTIONS (10)
  - HAEMOTHORAX [None]
  - PNEUMONIA [None]
  - RENAL FAILURE [None]
  - PUNCTURE SITE INFECTION [None]
  - ESCHERICHIA INFECTION [None]
  - URINARY TRACT INFECTION [None]
  - CARDIAC ARREST [None]
  - STAPHYLOCOCCAL INFECTION [None]
  - MULTI-ORGAN FAILURE [None]
  - CARDIAC TAMPONADE [None]
